FAERS Safety Report 9854788 (Version 1)
Quarter: 2014Q1

REPORT INFORMATION
  Report Type: Spontaneous
  Country: US (occurrence: US)
  Receive Date: 20140130
  Receipt Date: 20140130
  Transmission Date: 20141002
  Serious: No
  Sender: FDA-Public Use
  Company Number: US-PFIZER INC-2014026920

PATIENT
  Age: 69 Year
  Sex: Male

DRUGS (5)
  1. NEURONTIN [Suspect]
     Dosage: UNK
  2. VANCOMYCIN HCL [Suspect]
     Dosage: UNK
  3. ALLOPURINOL [Suspect]
     Dosage: UNK
  4. COLCHICINE [Suspect]
     Dosage: UNK
  5. INDOCIN [Suspect]
     Dosage: UNK

REACTIONS (1)
  - Drug hypersensitivity [Unknown]
